FAERS Safety Report 5956180-X (Version None)
Quarter: 2008Q4

REPORT INFORMATION
  Report Type: 
  Country: None (occurrence: None)
  Receive Date: 20081113
  Receipt Date: 20081028
  Transmission Date: 20090506
  Serious: Yes (Other)
  Sender: FDA-Public Use
  Company Number: 8038848

PATIENT
  Age: 48 Year
  Sex: Female

DRUGS (3)
  1. KEPPRA [Suspect]
     Indication: CONVULSION
  2. PHENYTOIN [Concomitant]
  3. PHENYTOIN [Concomitant]

REACTIONS (1)
  - STEVENS-JOHNSON SYNDROME [None]
